FAERS Safety Report 18801722 (Version 1)
Quarter: 2021Q1

REPORT INFORMATION
  Report Type: Spontaneous
  Country: AU (occurrence: AU)
  Receive Date: 20210128
  Receipt Date: 20210128
  Transmission Date: 20210419
  Serious: Yes (Hospitalization)
  Sender: FDA-Public Use
  Company Number: AU-TASMAN PHARMA, INC.-2021TSM00003

PATIENT
  Sex: Male

DRUGS (18)
  1. CLOZAPINE. [Suspect]
     Active Substance: CLOZAPINE
     Dosage: 400 MG
     Dates: start: 20170704, end: 20170726
  2. CLOZAPINE. [Suspect]
     Active Substance: CLOZAPINE
     Dosage: 250 MG
     Dates: start: 20190109, end: 20190206
  3. CLOZAPINE. [Suspect]
     Active Substance: CLOZAPINE
     Dosage: 300 MG
     Dates: start: 20200303, end: 20200401
  4. CLOZAPINE. [Suspect]
     Active Substance: CLOZAPINE
     Dosage: 200 MG
     Dates: start: 20180802, end: 20190108
  5. CLOZAPINE. [Suspect]
     Active Substance: CLOZAPINE
     Dosage: 225 MG
     Dates: start: 20180718, end: 20180801
  6. CLOZAPINE. [Suspect]
     Active Substance: CLOZAPINE
     Dosage: 350 MG
     Dates: start: 20190207, end: 20190403
  7. CLOZAPINE. [Suspect]
     Active Substance: CLOZAPINE
     Dosage: 300 MG
     Dates: start: 20200723, end: 20200914
  8. CLOZAPINE. [Suspect]
     Active Substance: CLOZAPINE
     Dosage: 300 MG
     Dates: start: 20200915, end: 20210101
  9. CLOZAPINE. [Suspect]
     Active Substance: CLOZAPINE
     Dosage: 300 MG
     Dates: start: 20200402, end: 20200427
  10. CLOZAPINE. [Suspect]
     Active Substance: CLOZAPINE
     Dosage: 300 MG
     Dates: start: 20200428, end: 20200722
  11. CLOZAPINE. [Suspect]
     Active Substance: CLOZAPINE
     Dosage: 400 MG
     Dates: start: 20170628, end: 20170703
  12. CLOZAPINE. [Suspect]
     Active Substance: CLOZAPINE
     Dosage: 400 MG
     Dates: start: 20170727, end: 20170731
  13. CLOZAPINE. [Suspect]
     Active Substance: CLOZAPINE
     Dosage: 400 MG
     Dates: start: 20170817, end: 20170919
  14. CLOZAPINE. [Suspect]
     Active Substance: CLOZAPINE
     Dosage: 250 MG
     Dates: start: 20190404, end: 20191111
  15. CLOZAPINE. [Suspect]
     Active Substance: CLOZAPINE
     Dosage: 400 MG
     Dates: start: 20170920, end: 20171124
  16. CLOZAPINE. [Suspect]
     Active Substance: CLOZAPINE
     Dosage: 400 MG
     Dates: start: 20170801, end: 20170816
  17. CLOZAPINE. [Suspect]
     Active Substance: CLOZAPINE
     Dosage: 300 MG
     Dates: start: 20191112, end: 20200302
  18. CLOZAPINE. [Suspect]
     Active Substance: CLOZAPINE
     Dosage: 150 MG
     Dates: start: 20180711, end: 20180717

REACTIONS (2)
  - Treatment noncompliance [Unknown]
  - Hospitalisation [Unknown]

NARRATIVE: CASE EVENT DATE: 20170628
